FAERS Safety Report 4334730-7 (Version None)
Quarter: 2004Q2

REPORT INFORMATION
  Report Type: 
  Country: None (occurrence: None)
  Receive Date: 20040407
  Receipt Date: 20040407
  Transmission Date: 20050107
  Serious: Yes (Hospitalization)
  Sender: FDA-Public Use
  Company Number: None

PATIENT
  Age: 80 Year
  Sex: Male
  Weight: 75.1 kg

DRUGS (2)
  1. TAXOTERE [Suspect]
     Indication: LUNG NEOPLASM MALIGNANT
     Dosage: 62.64 MG 1 WK X3 IV
     Route: 042
     Dates: start: 20040211
  2. GEMCITABINE [Suspect]
     Indication: LUNG NEOPLASM MALIGNANT
     Dosage: 1044 MG 1 Q WK X 3 IV
     Route: 042
     Dates: start: 20040211

REACTIONS (3)
  - DEEP VEIN THROMBOSIS [None]
  - FALL [None]
  - FEMUR FRACTURE [None]
